FAERS Safety Report 9260300 (Version 4)
Quarter: 2016Q3

REPORT INFORMATION
  Report Type: Spontaneous
  Country: US (occurrence: US)
  Receive Date: 20130429
  Receipt Date: 20160927
  Transmission Date: 20161109
  Serious: Yes (Disabling, Other)
  Sender: FDA-Public Use
  Company Number: US-BAYER-2013-052605

PATIENT
  Age: 61 Year
  Sex: Female

DRUGS (1)
  1. AVELOX [Suspect]
     Active Substance: MOXIFLOXACIN HYDROCHLORIDE
     Indication: SINUSITIS
     Dosage: 400 MG, UNK
     Dates: start: 20111229, end: 20120103

REACTIONS (14)
  - Pigment dispersion syndrome [None]
  - Anhedonia [None]
  - Iris hypopigmentation [None]
  - Somatic symptom disorder [None]
  - Uveitis [Recovering/Resolving]
  - Pigmentary glaucoma [None]
  - Photophobia [None]
  - Injury [None]
  - Presbyopia [None]
  - Intraocular pressure test [None]
  - Pain [None]
  - Quality of life decreased [None]
  - Visual impairment [None]
  - Emotional distress [None]
